FAERS Safety Report 17441555 (Version 2)
Quarter: 2020Q1

REPORT INFORMATION
  Report Type: Spontaneous
  Country: US (occurrence: US)
  Receive Date: 20200220
  Receipt Date: 20200220
  Transmission Date: 20200409
  Serious: Yes (Hospitalization, Other)
  Sender: FDA-Public Use
  Company Number: US-GILEAD-2020-0451803

PATIENT
  Age: 86 Year
  Sex: Male

DRUGS (1)
  1. EMTRIVA [Suspect]
     Active Substance: EMTRICITABINE
     Indication: PRODUCT USED FOR UNKNOWN INDICATION
     Route: 048

REACTIONS (3)
  - Small intestinal obstruction [Not Recovered/Not Resolved]
  - Dysphagia [Not Recovered/Not Resolved]
  - Intentional dose omission [Not Recovered/Not Resolved]
